FAERS Safety Report 8937146 (Version 1)
Quarter: 2012Q4

REPORT INFORMATION
  Report Type: Spontaneous
  Country: US (occurrence: None)
  Receive Date: 20121128
  Receipt Date: 20121128
  Transmission Date: 20130627
  Serious: Yes (Hospitalization)
  Sender: FDA-Public Use
  Company Number: None

PATIENT
  Age: 67 Year
  Sex: Male
  Weight: 89.5 kg

DRUGS (10)
  1. ASA [Suspect]
     Indication: CORONARY ARTERY DISEASE
     Dosage: 325MG QHS PO
     Route: 048
  2. XARELTO [Suspect]
     Indication: IMPLANTABLE DEFIBRILLATOR INSERTION
     Dosage: 20MG DAILY PO
     Route: 048
  3. NEXIUM [Concomitant]
  4. ALLOPURINOL [Concomitant]
  5. COREG [Concomitant]
  6. CRESTOR [Concomitant]
  7. ENALAPRIL [Concomitant]
  8. FISH OIL [Concomitant]
  9. NIASPAN ER [Concomitant]
  10. MVI [Concomitant]

REACTIONS (7)
  - Presyncope [None]
  - Microcytic anaemia [None]
  - Gastrointestinal haemorrhage [None]
  - Hypovolaemia [None]
  - Diverticulum intestinal [None]
  - Lipoma [None]
  - Acute prerenal failure [None]
